FAERS Safety Report 13368426 (Version 1)
Quarter: 2017Q1

REPORT INFORMATION
  Report Type: Spontaneous
  Country: US (occurrence: US)
  Receive Date: 20170324
  Receipt Date: 20170324
  Transmission Date: 20170429
  Serious: No
  Sender: FDA-Public Use
  Company Number: US-PFIZER INC-2017121099

PATIENT
  Age: 55 Year
  Sex: Male
  Weight: 107.9 kg

DRUGS (2)
  1. TESTOSTERONE. [Concomitant]
     Active Substance: TESTOSTERONE
     Indication: BLOOD TESTOSTERONE DECREASED
     Dosage: UNK, WEEKLY
     Route: 051
  2. VIAGRA [Suspect]
     Active Substance: SILDENAFIL CITRATE
     Indication: LIBIDO DECREASED
     Dosage: UNK
     Route: 048

REACTIONS (9)
  - Antisocial behaviour [Unknown]
  - Fatigue [Recovered/Resolved]
  - Asthenia [Recovered/Resolved]
  - Depression [Recovered/Resolved]
  - Mobility decreased [Recovered/Resolved]
  - Blood testosterone free decreased [Unknown]
  - Feeling abnormal [Unknown]
  - Activities of daily living impaired [Unknown]
  - Blood testosterone decreased [Unknown]
